FAERS Safety Report 23807605 (Version 1)
Quarter: 2024Q2

REPORT INFORMATION
  Report Type: Spontaneous
  Country: IN (occurrence: IN)
  Receive Date: 20240502
  Receipt Date: 20240502
  Transmission Date: 20240715
  Serious: Yes (Other)
  Sender: FDA-Public Use
  Company Number: IN-SUN PHARMACEUTICAL INDUSTRIES LTD-2024R1-439255

PATIENT
  Age: 27 Year
  Sex: Male

DRUGS (1)
  1. PHENYTOIN [Suspect]
     Active Substance: PHENYTOIN
     Indication: Seizure
     Dosage: UNK (350 MG)
     Route: 065

REACTIONS (3)
  - Cytotoxic lesions of corpus callosum [Recovered/Resolved]
  - Toxicity to various agents [Unknown]
  - Drug level increased [Unknown]
